FAERS Safety Report 17024240 (Version 1)
Quarter: 2019Q4

REPORT INFORMATION
  Report Type: Spontaneous
  Country: ES (occurrence: ES)
  Receive Date: 20191113
  Receipt Date: 20191113
  Transmission Date: 20200122
  Serious: Yes (Other)
  Sender: FDA-Public Use
  Company Number: ES-SUN PHARMACEUTICAL INDUSTRIES LTD-2019RR-227403

PATIENT
  Sex: Female
  Weight: 52 kg

DRUGS (1)
  1. ATORVASTATINA [Suspect]
     Active Substance: ATORVASTATIN
     Indication: PROPHYLAXIS
     Dosage: 80 MG/24 HS
     Route: 048
     Dates: start: 20190722, end: 20190809

REACTIONS (5)
  - Jaundice [Recovering/Resolving]
  - Hepatitis [Recovering/Resolving]
  - Choluria [Recovering/Resolving]
  - Hyperbilirubinaemia [Recovering/Resolving]
  - Myalgia [Recovering/Resolving]

NARRATIVE: CASE EVENT DATE: 20190809
